FAERS Safety Report 21197476 (Version 1)
Quarter: 2022Q3

REPORT INFORMATION
  Report Type: Spontaneous
  Country: US (occurrence: US)
  Receive Date: 20220810
  Receipt Date: 20220810
  Transmission Date: 20221027
  Serious: No
  Sender: FDA-Public Use
  Company Number: US-SA-SAC20220808001928

PATIENT
  Sex: Female
  Weight: 108.86 kg

DRUGS (8)
  1. AUBAGIO [Suspect]
     Active Substance: TERIFLUNOMIDE
     Indication: Multiple sclerosis
     Dosage: 14 MG, QD
     Route: 048
     Dates: start: 2018
  2. ARMODAFINIL [Concomitant]
     Active Substance: ARMODAFINIL
  3. CYANOCOBALAMIN [Concomitant]
     Active Substance: CYANOCOBALAMIN
     Dosage: 3000 MCG CAPSULE
  4. VITAMIN D3 [Concomitant]
     Active Substance: CHOLECALCIFEROL
     Dosage: 10 MCG CAPSULE
  5. VITAMIN C [Concomitant]
     Active Substance: ASCORBIC ACID
  6. LISINOPRIL [Concomitant]
     Active Substance: LISINOPRIL
  7. AIRBORNE [Concomitant]
     Active Substance: HERBALS\MINERALS\VITAMINS
     Dosage: 100MG-50MG TAB CHEW
  8. EMERGEN [Concomitant]

REACTIONS (3)
  - Lip swelling [Unknown]
  - Fall [Not Recovered/Not Resolved]
  - Drug ineffective [Unknown]
